FAERS Safety Report 7127952-3 (Version None)
Quarter: 2010Q4

REPORT INFORMATION
  Report Type: 
  Country: None (occurrence: None)
  Receive Date: 20101112
  Receipt Date: 20101103
  Transmission Date: 20110411
  Serious: Yes (Other)
  Sender: FDA-Public Use
  Company Number: 20108981

PATIENT
  Age: 40 Year
  Sex: Male

DRUGS (7)
  1. LIORESAL [Suspect]
     Indication: MUSCLE SPASTICITY
     Dosage: SEE B5 MCG, DAILY; INTRATHECAL
     Route: 039
  2. MIRALAX [Concomitant]
  3. OMEPRAZOLE [Concomitant]
  4. SUCRALFATE [Concomitant]
  5. NIACIN [Concomitant]
  6. OXYBUTYNIN [Concomitant]
  7. ZOLOFT [Concomitant]

REACTIONS (13)
  - ACTIVITIES OF DAILY LIVING IMPAIRED [None]
  - DECUBITUS ULCER [None]
  - DEVICE DEPLOYMENT ISSUE [None]
  - DRUG INEFFECTIVE [None]
  - ERYTHEMA [None]
  - HYPERTONIA [None]
  - IMPLANT SITE REACTION [None]
  - JOINT RANGE OF MOTION DECREASED [None]
  - KYPHOSIS [None]
  - MEDICAL DEVICE COMPLICATION [None]
  - MUSCLE TIGHTNESS [None]
  - POSTURE ABNORMAL [None]
  - WOUND DECOMPOSITION [None]
